FAERS Safety Report 10064732 (Version 1)
Quarter: 2014Q2

REPORT INFORMATION
  Report Type: Spontaneous
  Country: GB (occurrence: GB)
  Receive Date: 20140408
  Receipt Date: 20140408
  Transmission Date: 20141212
  Serious: Yes (Other)
  Sender: FDA-Public Use
  Company Number: GB-JNJFOC-20140318328

PATIENT
  Age: 68 Year
  Sex: Male
  Weight: 121 kg

DRUGS (24)
  1. OXYBUTYNIN HYDROCHLORIDE [Suspect]
     Indication: PRODUCT USED FOR UNKNOWN INDICATION
     Route: 065
  2. SIMVASTATIN [Concomitant]
     Route: 065
     Dates: start: 20131129
  3. TRAMADOL [Concomitant]
     Route: 065
     Dates: start: 20140204
  4. TRAMADOL [Concomitant]
     Route: 065
     Dates: start: 20131129, end: 20131229
  5. CLONAZEPAM [Concomitant]
     Route: 065
     Dates: start: 20131129, end: 20131227
  6. CLONAZEPAM [Concomitant]
     Route: 065
     Dates: start: 20140106
  7. FINASTERIDE [Concomitant]
     Route: 065
     Dates: start: 20131129, end: 20131227
  8. FINASTERIDE [Concomitant]
     Route: 065
     Dates: start: 20140204
  9. FUROSEMIDE [Concomitant]
     Route: 065
     Dates: start: 20131129
  10. GAVISCON ADVANCE [Concomitant]
     Route: 065
     Dates: start: 20140204, end: 20140220
  11. GAVISCON ADVANCE [Concomitant]
     Route: 065
     Dates: start: 20140106, end: 20140122
  12. ISOTARD XL [Concomitant]
     Route: 065
     Dates: start: 20140106
  13. ISOTARD XL [Concomitant]
     Route: 065
     Dates: start: 20131129, end: 20131227
  14. LISINOPRIL [Concomitant]
     Route: 065
     Dates: start: 20131129, end: 20131227
  15. LISINOPRIL [Concomitant]
     Route: 065
     Dates: start: 20140106
  16. RANITIDINE [Concomitant]
     Route: 065
     Dates: start: 20131129, end: 20131229
  17. TAMSULOSIN HYDROCHLORIDE [Concomitant]
     Route: 065
     Dates: start: 20131129
  18. ASPIRIN [Concomitant]
     Route: 065
     Dates: start: 20131129, end: 20131227
  19. ASPIRIN [Concomitant]
     Route: 065
     Dates: start: 20140106
  20. AMLODIPINE [Concomitant]
     Route: 065
     Dates: start: 20140106
  21. AMLODIPINE [Concomitant]
     Route: 065
     Dates: start: 20131129, end: 20131227
  22. GABAPENTIN [Concomitant]
     Route: 065
     Dates: start: 20131129
  23. BISOPROLOL [Concomitant]
     Route: 065
     Dates: start: 20140106
  24. BISOPROLOL [Concomitant]
     Route: 065
     Dates: start: 20131129, end: 20131227

REACTIONS (1)
  - Dyspnoea [Recovered/Resolved]
